FAERS Safety Report 12746580 (Version 1)
Quarter: 2016Q3

REPORT INFORMATION
  Report Type: Spontaneous
  Country: US (occurrence: US)
  Receive Date: 20160915
  Receipt Date: 20160915
  Transmission Date: 20161109
  Serious: No
  Sender: FDA-Public Use
  Company Number: None

PATIENT
  Age: 68 Year
  Sex: Male
  Weight: 65.3 kg

DRUGS (3)
  1. ISAVUCONAZOLE SULFATE ASTELLAS [Suspect]
     Active Substance: ISAVUCONAZOLE
     Indication: HISTOPLASMOSIS CUTANEOUS
     Route: 048
     Dates: start: 20160127, end: 20160831
  2. STRIBILD [Concomitant]
     Active Substance: COBICISTAT\ELVITEGRAVIR\EMTRICITABINE\TENOFOVIR DISOPROXIL FUMARATE
  3. TRIUMEQ [Concomitant]
     Active Substance: ABACAVIR SULFATE\DOLUTEGRAVIR SODIUM\LAMIVUDINE

REACTIONS (14)
  - Photosensitivity reaction [None]
  - Skin irritation [None]
  - Hot flush [None]
  - Rash [None]
  - Skin burning sensation [None]
  - Burning sensation [None]
  - Burning sensation mucosal [None]
  - Product distribution issue [None]
  - Drug interaction [None]
  - Therapy cessation [None]
  - Dysgeusia [None]
  - Abdominal discomfort [None]
  - Nausea [None]
  - Gastrooesophageal reflux disease [None]

NARRATIVE: CASE EVENT DATE: 20160913
